FAERS Safety Report 4757094-3 (Version None)
Quarter: 2005Q3

REPORT INFORMATION
  Report Type: 
  Country: None (occurrence: None)
  Receive Date: 20050829
  Receipt Date: 20050829
  Transmission Date: 20060218
  Serious: No
  Sender: FDA-Public Use
  Company Number: None

PATIENT
  Age: 30 Year
  Sex: Female
  Weight: 63.5036 kg

DRUGS (1)
  1. TOPAMAX [Suspect]
     Indication: MIGRAINE PROPHYLAXIS
     Dosage: 25MG   ONCE DAILY  PO
     Route: 048
     Dates: start: 20050810, end: 20050811

REACTIONS (3)
  - DISCOMFORT [None]
  - EYE DISORDER [None]
  - VISION BLURRED [None]
